FAERS Safety Report 6193233-8 (Version None)
Quarter: 2009Q2

REPORT INFORMATION
  Report Type: 
  Country: None (occurrence: None)
  Receive Date: 20090518
  Receipt Date: 20090508
  Transmission Date: 20091009
  Serious: Yes (Hospitalization)
  Sender: FDA-Public Use
  Company Number: A0784432A

PATIENT
  Age: 52 Year
  Sex: Male
  Weight: 72.7 kg

DRUGS (8)
  1. AVANDIA [Suspect]
     Dosage: 8MG PER DAY
     Route: 048
     Dates: start: 19990701, end: 20070401
  2. ACTOS [Concomitant]
  3. METFORMIN HCL [Concomitant]
  4. METOPROLOL [Concomitant]
  5. COZAAR [Concomitant]
  6. ALTACE [Concomitant]
  7. VYTORIN [Concomitant]
  8. ZETIA [Concomitant]

REACTIONS (2)
  - CORONARY ARTERY DISEASE [None]
  - MYOCARDIAL INFARCTION [None]
